FAERS Safety Report 9582059 (Version 1)
Quarter: 2013Q4

REPORT INFORMATION
  Report Type: Report from Study
  Country: US (occurrence: US)
  Receive Date: 20131002
  Receipt Date: 20131002
  Transmission Date: 20140711
  Serious: Yes (Other)
  Sender: FDA-Public Use
  Company Number: US-BAXTER-2013BAX038436

PATIENT
  Age: 23 Year
  Sex: Male

DRUGS (1)
  1. GAMMAGARD S/D [Suspect]
     Indication: PRODUCT USED FOR UNKNOWN INDICATION
     Route: 042
     Dates: start: 20130814

REACTIONS (8)
  - Hypersensitivity [Recovered/Resolved]
  - Throat tightness [Recovered/Resolved]
  - Cough [Recovered/Resolved]
  - Choking [Recovered/Resolved]
  - Spinal pain [Recovered/Resolved]
  - Feeling cold [Recovered/Resolved]
  - Arthralgia [Recovered/Resolved]
  - Headache [Recovered/Resolved]
